FAERS Safety Report 22850817 (Version 5)
Quarter: 2023Q4

REPORT INFORMATION
  Report Type: Spontaneous
  Country: US (occurrence: US)
  Receive Date: 20230822
  Receipt Date: 20231120
  Transmission Date: 20240110
  Serious: Yes (Hospitalization, Other)
  Sender: FDA-Public Use
  Company Number: US-PFIZER INC-202300279572

PATIENT
  Age: 89 Year
  Sex: Male
  Weight: 58.05 kg

DRUGS (1)
  1. BOSULIF [Suspect]
     Active Substance: BOSUTINIB MONOHYDRATE
     Indication: Chronic myeloid leukaemia
     Dosage: 100MG.TAKE 1 TABLET ONCE DAILY FOR 7 DAYS,THEN 2 TABLET DAILY FOR 7 DAYS,THEN 3 TABLETS DAILY
     Dates: start: 20230803

REACTIONS (8)
  - Fall [Unknown]
  - Asthenia [Recovered/Resolved]
  - Dizziness [Unknown]
  - Iron deficiency [Unknown]
  - Rash pruritic [Not Recovered/Not Resolved]
  - Haemoglobin decreased [Unknown]
  - Pruritus [Not Recovered/Not Resolved]
  - Eczema [Not Recovered/Not Resolved]

NARRATIVE: CASE EVENT DATE: 20230101
